FAERS Safety Report 15156870 (Version 1)
Quarter: 2018Q3

REPORT INFORMATION
  Report Type: Spontaneous
  Country: US (occurrence: US)
  Receive Date: 20180718
  Receipt Date: 20180718
  Transmission Date: 20181010
  Serious: No
  Sender: FDA-Public Use
  Company Number: US-LUPIN PHARMACEUTICALS INC.-2018-03806

PATIENT
  Age: 17 Year
  Sex: Female
  Weight: 47.17 kg

DRUGS (2)
  1. TRI?LO?MARZIA [Suspect]
     Active Substance: ETHINYL ESTRADIOL\NORGESTIMATE
     Indication: PREMENSTRUAL SYNDROME
     Dosage: 0.18,0.215,0.25/0.25MG, QD
     Route: 048
     Dates: start: 201612
  2. FLONASE                            /00908302/ [Concomitant]
     Active Substance: MOMETASONE FUROATE
     Indication: PRODUCT USED FOR UNKNOWN INDICATION
     Dosage: UNK
     Route: 065

REACTIONS (2)
  - Off label use [Not Recovered/Not Resolved]
  - Serum ferritin abnormal [Not Recovered/Not Resolved]

NARRATIVE: CASE EVENT DATE: 201612
